FAERS Safety Report 13839552 (Version 1)
Quarter: 2017Q3

REPORT INFORMATION
  Report Type: Spontaneous
  Country: US (occurrence: US)
  Receive Date: 20170805
  Receipt Date: 20170805
  Transmission Date: 20171127
  Serious: No
  Sender: FDA-Public Use
  Company Number: None

PATIENT
  Age: 18 Year
  Sex: Female

DRUGS (5)
  1. ALBUTEROL. [Concomitant]
     Active Substance: ALBUTEROL
  2. IODINE. [Suspect]
     Active Substance: IODINE
     Indication: PROPHYLAXIS
     Route: 061
     Dates: start: 20161224
  3. OXYCODONE-ACETAMINOPHEN [Concomitant]
     Active Substance: ACETAMINOPHEN\OXYCODONE HYDROCHLORIDE
  4. OXYTOCIN. [Concomitant]
     Active Substance: OXYTOCIN
  5. FLUTICASONE. [Concomitant]
     Active Substance: FLUTICASONE

REACTIONS (5)
  - Lip swelling [None]
  - Pruritus generalised [None]
  - Sinus tachycardia [None]
  - Hypersensitivity [None]
  - Electrocardiogram T wave abnormal [None]
